FAERS Safety Report 18975962 (Version 1)
Quarter: 2021Q1

REPORT INFORMATION
  Report Type: Spontaneous
  Country: GB (occurrence: GB)
  Receive Date: 20210305
  Receipt Date: 20210305
  Transmission Date: 20210420
  Serious: Yes (Other)
  Sender: FDA-Public Use
  Company Number: GB-INCYTE CORPORATION-2021IN001902

PATIENT

DRUGS (1)
  1. JAKAVI [Suspect]
     Active Substance: RUXOLITINIB
     Indication: MYELOFIBROSIS
     Dosage: 25 MG, BID
     Route: 065

REACTIONS (5)
  - Weight decreased [Unknown]
  - Night sweats [Unknown]
  - Splenomegaly [Unknown]
  - Fatigue [Unknown]
  - Haemoglobin decreased [Unknown]
